FAERS Safety Report 11642861 (Version 1)
Quarter: 2015Q4

REPORT INFORMATION
  Report Type: Spontaneous
  Country: DE (occurrence: DE)
  Receive Date: 20151020
  Receipt Date: 20151020
  Transmission Date: 20160304
  Serious: Yes (Hospitalization)
  Sender: FDA-Public Use
  Company Number: DE-PFIZER INC-2015341417

PATIENT
  Age: 63 Year
  Sex: Male

DRUGS (6)
  1. ASPIRIN. [Concomitant]
     Active Substance: ASPIRIN
     Dosage: UNK
     Dates: start: 2000
  2. METOPROLOL TARTRATE. [Suspect]
     Active Substance: METOPROLOL TARTRATE
     Indication: THROMBOSIS
  3. DELIX [Suspect]
     Active Substance: RAMIPRIL
     Indication: PULMONARY EMBOLISM
     Dosage: UNK
     Route: 065
     Dates: start: 2000
  4. DELIX [Suspect]
     Active Substance: RAMIPRIL
     Indication: THROMBOSIS
  5. ISOKET [Concomitant]
     Active Substance: ISOSORBIDE DINITRATE
     Dosage: UNK
     Dates: start: 2000
  6. METOPROLOL TARTRATE. [Suspect]
     Active Substance: METOPROLOL TARTRATE
     Indication: PULMONARY EMBOLISM
     Dosage: UNK
     Route: 065

REACTIONS (2)
  - Circulatory collapse [Unknown]
  - Blood pressure decreased [Unknown]

NARRATIVE: CASE EVENT DATE: 20150907
